FAERS Safety Report 4430294-8 (Version None)
Quarter: 2004Q3

REPORT INFORMATION
  Report Type: 
  Country: None (occurrence: None)
  Receive Date: 20040817
  Receipt Date: 20040804
  Transmission Date: 20050211
  Serious: Yes (Other)
  Sender: FDA-Public Use
  Company Number: 2004053371

PATIENT
  Age: 24 Year
  Sex: Female

DRUGS (2)
  1. DIFLUCAN [Suspect]
     Indication: VAGINAL CANDIDIASIS
     Dosage: 150 MG (150 MG), ORAL
     Route: 048
     Dates: start: 20040206, end: 20040206
  2. VENFLAXINE HYDROCHLORIDE (VENLAFAXINE HYDROCHLORIDE) [Concomitant]

REACTIONS (3)
  - ABORTION SPONTANEOUS [None]
  - DRUG EXPOSURE DURING PREGNANCY [None]
  - PREGNANCY [None]
